FAERS Safety Report 15325509 (Version 1)
Quarter: 2018Q3

REPORT INFORMATION
  Report Type: Spontaneous
  Country: FR (occurrence: FR)
  Receive Date: 20180828
  Receipt Date: 20180828
  Transmission Date: 20181010
  Serious: Yes (Hospitalization)
  Sender: FDA-Public Use
  Company Number: FR-ALLERGAN-1841350US

PATIENT
  Age: 10 Year
  Sex: Female

DRUGS (3)
  1. PARACETAMOL [Suspect]
     Active Substance: ACETAMINOPHEN
     Indication: SUICIDE ATTEMPT
     Dosage: 2 G; IN TOTAL
     Route: 048
     Dates: start: 20180626, end: 20180626
  2. ESCITALOPRAM OXALATE ? BP [Suspect]
     Active Substance: ESCITALOPRAM OXALATE
     Indication: SUICIDE ATTEMPT
     Dosage: OVERDOSE: 40MG; IN TOTAL
     Route: 048
     Dates: start: 20180626, end: 20180626
  3. SERESTA [Suspect]
     Active Substance: OXAZEPAM
     Indication: SUICIDE ATTEMPT
     Dosage: 10 MG; IN TOTAL
     Route: 048
     Dates: start: 20180626, end: 20180626

REACTIONS (5)
  - Toxicity to various agents [Recovered/Resolved]
  - Drug administered to patient of inappropriate age [Unknown]
  - Overdose [Unknown]
  - Off label use [Unknown]
  - Hallucination, visual [Recovered/Resolved]

NARRATIVE: CASE EVENT DATE: 20180626
